FAERS Safety Report 5806401-9 (Version None)
Quarter: 2008Q3

REPORT INFORMATION
  Report Type: 
  Country: None (occurrence: None)
  Receive Date: 20080710
  Receipt Date: 20080702
  Transmission Date: 20090109
  Serious: Yes (Hospitalization)
  Sender: FDA-Public Use
  Company Number: US-ABBOTT-08P-163-0460630-00

PATIENT
  Sex: Female
  Weight: 56.75 kg

DRUGS (7)
  1. HUMIRA [Suspect]
     Indication: RHEUMATOID ARTHRITIS
     Route: 058
     Dates: start: 20031201, end: 20070901
  2. HUMIRA [Suspect]
     Dates: start: 20071201, end: 20080621
  3. METHOTREXATE [Suspect]
     Indication: RHEUMATOID ARTHRITIS
     Route: 048
     Dates: start: 20030101, end: 20070301
  4. METHADON HCL TAB [Concomitant]
     Indication: PAIN MANAGEMENT
     Route: 048
     Dates: start: 20020101
  5. FLUOXETINE [Concomitant]
     Indication: DEPRESSION
     Route: 048
  6. ULTRASET [Concomitant]
     Indication: RHEUMATOID ARTHRITIS
     Route: 048
  7. BACLOFEN [Concomitant]
     Indication: RHEUMATOID ARTHRITIS
     Route: 048

REACTIONS (10)
  - ARTHROPATHY [None]
  - CONTUSION [None]
  - DISEASE PROGRESSION [None]
  - EXCORIATION [None]
  - HIP DEFORMITY [None]
  - MUSCULAR WEAKNESS [None]
  - PAIN [None]
  - RENAL IMPAIRMENT [None]
  - RIB FRACTURE [None]
  - WEIGHT DECREASED [None]
